FAERS Safety Report 9719361 (Version 1)
Quarter: 2013Q4

REPORT INFORMATION
  Report Type: Spontaneous
  Country: US (occurrence: US)
  Receive Date: 20131127
  Receipt Date: 20131127
  Transmission Date: 20140711
  Serious: No
  Sender: FDA-Public Use
  Company Number: US-B.I. PHARMACEUTICALS,INC./RIDGEFIELD-2013-BI-37975BP

PATIENT
  Age: 77 Year
  Sex: Female
  Weight: 51 kg

DRUGS (7)
  1. COMBIVENT [Suspect]
     Indication: CHRONIC OBSTRUCTIVE PULMONARY DISEASE
     Dosage: DOSE STRENGTH: 20MCG/100, DAILY DOSE: 120MCG/600MCG
     Route: 055
     Dates: start: 201308
  2. SINGULAIR [Concomitant]
     Indication: CHRONIC OBSTRUCTIVE PULMONARY DISEASE
     Dosage: 10 MG
     Route: 048
  3. SINGULAIR [Concomitant]
     Indication: ASTHMA
  4. ALBUTEROL NEBS [Concomitant]
     Indication: CHRONIC OBSTRUCTIVE PULMONARY DISEASE
     Route: 055
  5. ALBUTEROL NEBS [Concomitant]
     Indication: ASTHMA
  6. ADVAIR [Concomitant]
     Indication: CHRONIC OBSTRUCTIVE PULMONARY DISEASE
     Dosage: STRENGTH:500MCG/50MCG; DAILY DOSE:1000MC G/100MCG
     Route: 055
  7. COMBIVENT CFC [Concomitant]
     Indication: CHRONIC OBSTRUCTIVE PULMONARY DISEASE
     Dosage: STRENGTH:18MCG/103MCG;DAILY DOSE:144MCG/824MCG
     Route: 055
     Dates: start: 2003, end: 20130801

REACTIONS (5)
  - Dyspnoea [Not Recovered/Not Resolved]
  - Eye pain [Not Recovered/Not Resolved]
  - Vision blurred [Not Recovered/Not Resolved]
  - Dysphonia [Not Recovered/Not Resolved]
  - Tearfulness [Not Recovered/Not Resolved]
